FAERS Safety Report 9053956 (Version 2)
Quarter: 2013Q1

REPORT INFORMATION
  Report Type: Spontaneous
  Country: VE (occurrence: VE)
  Receive Date: 20130115
  Receipt Date: 20130115
  Transmission Date: 20140127
  Serious: Yes (Other)
  Sender: FDA-Public Use
  Company Number: PHHY2011VE56424

PATIENT
  Age: 81 Year
  Sex: Female

DRUGS (10)
  1. ACLASTA [Suspect]
     Indication: OSTEOPOROSIS
     Dosage: 5 MG, UNK
     Route: 042
     Dates: start: 20101102
  2. FLEXURA D [Concomitant]
     Dosage: UNK UKN, UNK
  3. CALCIUM CITRATE W/VITAMIN D NOS [Concomitant]
     Dosage: 1 DF, QD
  4. AMLODIPINE [Concomitant]
     Dosage: UNK
  5. ROCALTROL [Concomitant]
     Dosage: UNK UKN, UNK
  6. MELOXICAM [Concomitant]
     Dosage: UNK
  7. OMEPRAZOLE [Concomitant]
     Dosage: UNK
  8. PROTELOS [Concomitant]
     Indication: OSTEOPOROSIS
     Dosage: UNK ONCE DAILY
     Route: 048
  9. GLUCOVANCE [Concomitant]
     Indication: DIABETES MELLITUS
     Dosage: 2.5/500MG ONCE DAILY
     Route: 048
  10. LOSARTAN [Concomitant]
     Indication: HYPERTENSION
     Dosage: 50 MG, QD
     Route: 048

REACTIONS (10)
  - Fall [Unknown]
  - Joint dislocation [Unknown]
  - Blood pressure systolic increased [Unknown]
  - Clumsiness [Recovered/Resolved]
  - Inflammation [Recovering/Resolving]
  - Grip strength decreased [Recovering/Resolving]
  - Dysphemia [Recovered/Resolved]
  - Pain [Recovering/Resolving]
  - Dizziness [Recovered/Resolved]
  - Vision blurred [Recovered/Resolved]
